FAERS Safety Report 23362092 (Version 1)
Quarter: 2024Q1

REPORT INFORMATION
  Report Type: Spontaneous
  Country: US (occurrence: None)
  Receive Date: 20240102
  Receipt Date: 20240102
  Transmission Date: 20240409
  Serious: Yes (Disabling, Other)
  Sender: FDA-Public Use
  Company Number: None

PATIENT
  Age: 33 Year
  Sex: Male

DRUGS (1)
  1. FINASTERIDE [Suspect]
     Active Substance: FINASTERIDE
     Indication: Alopecia
     Dates: start: 20160101, end: 20230825

REACTIONS (17)
  - Arthralgia [None]
  - Myalgia [None]
  - Anhedonia [None]
  - Anxiety [None]
  - Depression [None]
  - Peripheral coldness [None]
  - Suicidal ideation [None]
  - Hypoaesthesia [None]
  - Testicular pain [None]
  - Ejaculation failure [None]
  - Insomnia [None]
  - Dyskinesia [None]
  - Headache [None]
  - Dizziness [None]
  - Head discomfort [None]
  - Nausea [None]
  - Vomiting [None]

NARRATIVE: CASE EVENT DATE: 20230825
